FAERS Safety Report 8407076 (Version 2)
Quarter: 2013Q4

REPORT INFORMATION
  Report Type: Report from Study
  Country: US (occurrence: US)
  Receive Date: 20120215
  Receipt Date: 20131029
  Transmission Date: 20140711
  Serious: Yes (Hospitalization)
  Sender: FDA-Public Use
  Company Number: US-UCBSA-029540

PATIENT
  Age: 57 Year
  Sex: Female
  Weight: 90.71 kg

DRUGS (15)
  1. CIMZIA [Suspect]
     Indication: CROHN^S DISEASE
     Route: 058
     Dates: start: 20090701
  2. MESALAMINE [Concomitant]
     Indication: CROHN^S DISEASE
     Dates: start: 20060515, end: 20080201
  3. MESALAMINE [Concomitant]
     Indication: CROHN^S DISEASE
     Dates: start: 20080210
  4. ACETAMINOPHEN [Concomitant]
     Indication: CROHN^S DISEASE
  5. METOPROLOL [Concomitant]
     Indication: BLOOD PRESSURE
     Route: 048
  6. BENICAR [Concomitant]
     Indication: BLOOD PRESSURE
     Route: 048
  7. CLONIDINE [Concomitant]
     Indication: BLOOD PRESSURE
     Dosage: 0.1 MG
     Route: 048
  8. COUMADIN [Concomitant]
     Indication: ANTICOAGULANT THERAPY
     Route: 048
  9. TRAZODONE [Concomitant]
     Indication: ANTIDEPRESSANT THERAPY
     Route: 048
  10. ACIPHEX [Concomitant]
     Indication: ANTACID THERAPY
     Route: 048
  11. ASTEPRO [Concomitant]
     Indication: ANTIALLERGIC THERAPY
     Dosage: 0.15% 2 PUFFS/NOSTRIL
     Route: 045
  12. NASACORT AQ [Concomitant]
     Indication: HYPERSENSITIVITY
     Dosage: 2 PUFFS/NOSTRIL
     Route: 045
  13. PROMETHAZINE [Concomitant]
     Indication: THERAPEUTIC EMESIS
     Dosage: 50 MG
     Route: 048
  14. CIPRO [Concomitant]
     Indication: CROHN^S DISEASE
  15. FLAGYL [Concomitant]
     Indication: CROHN^S DISEASE

REACTIONS (1)
  - Bronchitis [Recovered/Resolved]
